FAERS Safety Report 9496541 (Version 1)
Quarter: 2013Q3

REPORT INFORMATION
  Report Type: Report from Study
  Country: JP (occurrence: JP)
  Receive Date: 20130904
  Receipt Date: 20130904
  Transmission Date: 20140515
  Serious: Yes (Death)
  Sender: FDA-Public Use
  Company Number: JP-ROCHE-1268804

PATIENT
  Age: 49 Year
  Sex: Male
  Weight: 51.4 kg

DRUGS (27)
  1. RITUXIMAB [Suspect]
     Indication: NON-HODGKIN^S LYMPHOMA
     Route: 042
     Dates: start: 20110727, end: 20110727
  2. INOTUZUMAB OZOGAMICIN [Suspect]
     Indication: NON-HODGKIN^S LYMPHOMA
     Route: 042
     Dates: start: 20110728, end: 20110728
  3. URSODEOXYCHOLIC ACID [Concomitant]
     Route: 065
     Dates: start: 20120824, end: 20120920
  4. LAXOBERON [Concomitant]
     Route: 048
     Dates: start: 20120824
  5. XYLOCAINE [Concomitant]
     Route: 049
     Dates: start: 20120824
  6. PROGRAF [Concomitant]
     Dosage: 0.2-0.40 ML
     Route: 042
     Dates: start: 20120912, end: 20120920
  7. ACICLOVIR [Concomitant]
     Route: 042
     Dates: start: 20120912
  8. FLUCONAZOLE [Concomitant]
     Route: 042
     Dates: start: 20120912, end: 20120920
  9. MEROPEN (JAPAN) [Concomitant]
     Route: 042
     Dates: start: 20120912
  10. TEICOPLANIN [Concomitant]
     Route: 042
     Dates: start: 20120914
  11. LASIX [Concomitant]
     Dosage: 40-80 MG
     Route: 042
  12. TAKEPRON [Concomitant]
     Route: 015
     Dates: start: 20120912
  13. BISOLVON [Concomitant]
     Route: 065
     Dates: start: 20120912
  14. SODIUM CHLORIDE [Concomitant]
     Route: 041
     Dates: start: 20120905
  15. POTASSIUM CHLORIDE [Concomitant]
     Route: 041
     Dates: start: 20120905
  16. MAGNESIUM SULPHATE [Concomitant]
     Route: 041
     Dates: start: 20120910
  17. INTRALIPOS [Concomitant]
     Route: 042
     Dates: start: 20120913
  18. GLUCOSE [Concomitant]
     Route: 042
     Dates: start: 20120912
  19. INSULIN HUMAN [Concomitant]
     Route: 042
     Dates: start: 20120911
  20. DOPAMINE HYDROCHLORIDE [Concomitant]
     Dosage: 3 ML/H
     Route: 041
     Dates: start: 20120912
  21. HANP [Concomitant]
     Route: 041
     Dates: start: 201209
  22. FENTANYL [Concomitant]
     Route: 041
     Dates: start: 20120912
  23. FILGRASTIM [Concomitant]
     Route: 058
     Dates: start: 20120911
  24. CYCLOPHOSPHAMIDE [Concomitant]
  25. DOXORUBICIN [Concomitant]
  26. VINCRISTINE [Concomitant]
  27. PREDNISONE [Concomitant]

REACTIONS (2)
  - Thrombotic microangiopathy [Fatal]
  - Venoocclusive liver disease [Fatal]
